FAERS Safety Report 4793643-7 (Version None)
Quarter: 2005Q4

REPORT INFORMATION
  Report Type: 
  Country: None (occurrence: None)
  Receive Date: 20051006
  Receipt Date: 20050929
  Transmission Date: 20060501
  Serious: Yes (Hospitalization, Disabling)
  Sender: FDA-Public Use
  Company Number: USA-2004-0014659

PATIENT
  Age: 35 Year
  Sex: Female

DRUGS (6)
  1. OXYCONTIN [Suspect]
     Indication: PAIN
     Dosage: 20 MG, Q6H,
  2. MS CONTIN [Suspect]
  3. OXYCODONE HCL [Suspect]
  4. MORPHINE [Suspect]
     Dosage: TRANSDERMAL
     Route: 062
  5. PERCOCET [Suspect]
  6. NORCO [Suspect]

REACTIONS (3)
  - AMNESIA [None]
  - BRAIN DAMAGE [None]
  - COMA [None]
